FAERS Safety Report 20923477 (Version 1)
Quarter: 2022Q2

REPORT INFORMATION
  Report Type: Other
  Country: US (occurrence: None)
  Receive Date: 20220607
  Receipt Date: 20220607
  Transmission Date: 20220720
  Serious: Yes (Hospitalization)
  Sender: FDA-Public Use
  Company Number: US-ROCHE-3111023

PATIENT
  Sex: Male
  Weight: 28.49 kg

DRUGS (2)
  1. NUTROPIN [Suspect]
     Active Substance: SOMATROPIN
     Indication: Hypopituitarism
     Dosage: NUTROPIN NUSPIN 10 INJ: 1.2 MG SC DAILY ;ONGOING: YES
     Route: 058
     Dates: start: 20220526
  2. NUTROPIN [Suspect]
     Active Substance: SOMATROPIN
     Route: 058

REACTIONS (1)
  - Arthralgia [Not Recovered/Not Resolved]
